FAERS Safety Report 22678452 (Version 3)
Quarter: 2024Q1

REPORT INFORMATION
  Report Type: Spontaneous
  Country: US (occurrence: US)
  Receive Date: 20230706
  Receipt Date: 20240105
  Transmission Date: 20240410
  Serious: No
  Sender: FDA-Public Use
  Company Number: US-PFIZER INC-PV202300115381

PATIENT
  Age: 73 Year
  Sex: Female
  Weight: 61.224 kg

DRUGS (3)
  1. IBRANCE [Suspect]
     Active Substance: PALBOCICLIB
     Indication: Breast cancer female
     Dosage: 100 MG, 1X/DAY
     Route: 048
     Dates: start: 202304
  2. IBRANCE [Suspect]
     Active Substance: PALBOCICLIB
     Dosage: 100 MG, CYCLIC( DAILY FOR 3 WEEKS FOLLOWED BY ONE WEEK OFF )
  3. FULVESTRANT [Concomitant]
     Active Substance: FULVESTRANT
     Dosage: 1 SHOT MONTHLY
     Dates: start: 202304

REACTIONS (4)
  - Throat irritation [Unknown]
  - Gastrointestinal disorder [Recovered/Resolved]
  - Diarrhoea [Recovered/Resolved]
  - Balance disorder [Recovered/Resolved]

NARRATIVE: CASE EVENT DATE: 20230401
